FAERS Safety Report 21542660 (Version 2)
Quarter: 2022Q4

REPORT INFORMATION
  Report Type: Spontaneous
  Country: JP (occurrence: JP)
  Receive Date: 20221102
  Receipt Date: 20221124
  Transmission Date: 20230113
  Serious: Yes (Other)
  Sender: FDA-Public Use
  Company Number: JP-MTPC-MTPC2022-0029602

PATIENT
  Age: 4 Decade
  Sex: Male

DRUGS (1)
  1. REMICADE [Suspect]
     Active Substance: INFLIXIMAB
     Indication: Crohn^s disease
     Dosage: UNK
     Route: 041

REACTIONS (8)
  - Anorectal swelling [Recovering/Resolving]
  - Drain placement [Unknown]
  - Anal dilation procedure [Unknown]
  - Stoma creation [Unknown]
  - Anorectal disorder [Recovered/Resolved]
  - Proctalgia [Recovering/Resolving]
  - Proctalgia [Recovered/Resolved]
  - Therapeutic product effect incomplete [Unknown]
